FAERS Safety Report 6833765-X (Version None)
Quarter: 2010Q3

REPORT INFORMATION
  Report Type: 
  Country: None (occurrence: None)
  Receive Date: 20100712
  Receipt Date: 20070331
  Transmission Date: 20110219
  Serious: No
  Sender: FDA-Public Use
  Company Number: US-PFIZER INC-2007026427

PATIENT
  Sex: Female
  Weight: 83.46 kg

DRUGS (6)
  1. CHANTIX [Suspect]
     Indication: SMOKING CESSATION THERAPY
     Dates: start: 20070314
  2. TRAMADOL [Concomitant]
  3. TEMAZEPAM [Concomitant]
  4. PROZAC [Concomitant]
  5. NAPROXEN [Concomitant]
  6. LOVASTATIN [Concomitant]

REACTIONS (2)
  - CONSTIPATION [None]
  - NAUSEA [None]
